FAERS Safety Report 25310924 (Version 1)
Quarter: 2025Q2

REPORT INFORMATION
  Report Type: Spontaneous
  Country: US (occurrence: None)
  Receive Date: 20250514
  Receipt Date: 20250514
  Transmission Date: 20250716
  Serious: Yes (Hospitalization)
  Sender: NORDIC PHARMA
  Company Number: US-MLMSERVICE-20250429-PI494195-00218-1

PATIENT
  Age: 73 Year
  Sex: Male

DRUGS (2)
  1. METHOTREXATE [Suspect]
     Active Substance: METHOTREXATE
     Indication: Immunosuppressant drug therapy
  2. MYCOPHENOLIC ACID [Concomitant]
     Active Substance: MYCOPHENOLIC ACID
     Indication: Immunosuppressant drug therapy

REACTIONS (5)
  - Barrett^s oesophagus [Unknown]
  - Cytomegalovirus gastroenteritis [Unknown]
  - Gastritis erosive [Unknown]
  - Cytomegalovirus colitis [Unknown]
  - Gastric polyps [Unknown]
